FAERS Safety Report 21274480 (Version 1)
Quarter: 2022Q3

REPORT INFORMATION
  Report Type: Spontaneous
  Country: US (occurrence: None)
  Receive Date: 20220830
  Receipt Date: 20220830
  Transmission Date: 20221027
  Serious: No
  Sender: FDA-Public Use
  Company Number: None

PATIENT
  Age: 58 Year
  Sex: Female
  Weight: 51.26 kg

DRUGS (3)
  1. OTREXUP [Suspect]
     Active Substance: METHOTREXATE
     Indication: Rheumatoid arthritis
     Dosage: FREQUENCY : WEEKLY;?
     Route: 058
     Dates: start: 202111
  2. OTREXUP [Suspect]
     Active Substance: METHOTREXATE
     Indication: Rheumatoid arthritis
  3. OTREXUP [Suspect]
     Active Substance: METHOTREXATE
     Indication: Rheumatoid arthritis

REACTIONS (2)
  - Therapy interrupted [None]
  - COVID-19 [None]
